FAERS Safety Report 14529667 (Version 1)
Quarter: 2018Q1

REPORT INFORMATION
  Report Type: Spontaneous
  Country: RU (occurrence: RU)
  Receive Date: 20180214
  Receipt Date: 20180214
  Transmission Date: 20180509
  Serious: Yes (Other)
  Sender: FDA-Public Use
  Company Number: RU-ASTRAZENECA-2018SE16810

PATIENT
  Age: 65 Year
  Sex: Female
  Weight: 82 kg

DRUGS (1)
  1. SYMBICORT [Suspect]
     Active Substance: BUDESONIDE\FORMOTEROL FUMARATE DIHYDRATE
     Indication: ASTHMA
     Dosage: 320/9 MCG, DAILY
     Route: 055
     Dates: start: 20171117, end: 20171125

REACTIONS (3)
  - Arthralgia [Unknown]
  - Asphyxia [Unknown]
  - Seizure [Unknown]

NARRATIVE: CASE EVENT DATE: 20171117
